FAERS Safety Report 6554335-7 (Version None)
Quarter: 2010Q1

REPORT INFORMATION
  Report Type: 
  Country: None (occurrence: None)
  Receive Date: 20100127
  Receipt Date: 20100125
  Transmission Date: 20100710
  Serious: Yes (Other)
  Sender: FDA-Public Use
  Company Number: A0841253A

PATIENT
  Age: 57 Year
  Sex: Female

DRUGS (9)
  1. ADVAIR [Suspect]
     Indication: CHRONIC OBSTRUCTIVE PULMONARY DISEASE
     Dosage: 1PUFF TWICE PER DAY
     Route: 055
     Dates: start: 20070101
  2. ZYRTEC [Concomitant]
  3. DIAVAN [Concomitant]
  4. NORVASC [Concomitant]
  5. METFORMIN HCL [Concomitant]
  6. CRESTOR [Concomitant]
  7. ATIVAN [Concomitant]
  8. MULTI-VITAMIN [Concomitant]
  9. ZITHROMAX [Concomitant]

REACTIONS (8)
  - BONE PAIN [None]
  - CHEST PAIN [None]
  - CHILLS [None]
  - DYSPHONIA [None]
  - IMMUNE SYSTEM DISORDER [None]
  - PNEUMONIA [None]
  - PYREXIA [None]
  - RESPIRATORY TRACT INFECTION [None]
